FAERS Safety Report 4809255-2 (Version None)
Quarter: 2005Q4

REPORT INFORMATION
  Report Type: 
  Country: None (occurrence: None)
  Receive Date: 20051021
  Receipt Date: 20051010
  Transmission Date: 20060501
  Serious: Yes (Life-Threatening, Hospitalization)
  Sender: FDA-Public Use
  Company Number: 2005RR-00897

PATIENT
  Age: 39 Year
  Sex: Female

DRUGS (5)
  1. ETODOLAC [Suspect]
     Dosage: 600 MG , QD, ORAL
     Route: 048
     Dates: start: 20050821, end: 20050906
  2. VIGABATRIN [Concomitant]
  3. VALPROATE SODIUM [Concomitant]
  4. CLOBAZAM [Concomitant]
  5. KEPPRA [Concomitant]

REACTIONS (1)
  - STATUS EPILEPTICUS [None]
